FAERS Safety Report 10422054 (Version 1)
Quarter: 2014Q3

REPORT INFORMATION
  Report Type: Spontaneous
  Country: US (occurrence: US)
  Receive Date: 20140901
  Receipt Date: 20140901
  Transmission Date: 20150326
  Serious: No
  Sender: FDA-Public Use
  Company Number: US-SA-2013SA105367

PATIENT
  Age: 70 Year
  Sex: Female

DRUGS (5)
  1. NORVASC [Concomitant]
     Active Substance: AMLODIPINE BESYLATE
     Route: 065
     Dates: start: 1983
  2. AVAPRO [Suspect]
     Active Substance: IRBESARTAN
     Indication: BLOOD PRESSURE
     Route: 048
     Dates: start: 1983
  3. AMARYL [Concomitant]
     Active Substance: GLIMEPIRIDE
     Route: 065
     Dates: start: 1983
  4. SYNTHROID [Concomitant]
     Active Substance: LEVOTHYROXINE SODIUM
     Route: 065
     Dates: start: 1983
  5. PREMARIN [Concomitant]
     Active Substance: ESTROGENS, CONJUGATED
     Route: 065
     Dates: start: 1983

REACTIONS (5)
  - Hypoaesthesia [Not Recovered/Not Resolved]
  - Irritable bowel syndrome [Unknown]
  - Diarrhoea [Not Recovered/Not Resolved]
  - Back disorder [Not Recovered/Not Resolved]
  - Gait disturbance [Not Recovered/Not Resolved]
